FAERS Safety Report 6045464-5 (Version None)
Quarter: 2009Q1

REPORT INFORMATION
  Report Type: 
  Country: None (occurrence: None)
  Receive Date: 20090121
  Receipt Date: 20090119
  Transmission Date: 20090719
  Serious: Yes (Other)
  Sender: FDA-Public Use
  Company Number: B0554103A

PATIENT
  Age: 53 Year
  Sex: Male

DRUGS (1)
  1. CIGANON CQ1 [Suspect]
     Indication: SMOKING CESSATION THERAPY
     Dosage: 1PAT PER DAY
     Route: 062
     Dates: start: 20090101, end: 20090103

REACTIONS (7)
  - ANOREXIA [None]
  - APATHY [None]
  - CHILLS [None]
  - DIARRHOEA [None]
  - HEART RATE IRREGULAR [None]
  - MALAISE [None]
  - RESPIRATORY DISTRESS [None]
